FAERS Safety Report 14212924 (Version 1)
Quarter: 2017Q4

REPORT INFORMATION
  Report Type: Spontaneous
  Country: US (occurrence: US)
  Receive Date: 20171122
  Receipt Date: 20171122
  Transmission Date: 20180321
  Serious: Yes (Hospitalization, Other)
  Sender: FDA-Public Use
  Company Number: US-ASTELLAS-2017US047793

PATIENT
  Age: 37 Year
  Sex: Female

DRUGS (8)
  1. TACROLIMUS. [Suspect]
     Active Substance: TACROLIMUS
     Dosage: UNK, UNKNOWN FREQ.
     Route: 042
  2. TACROLIMUS. [Suspect]
     Active Substance: TACROLIMUS
     Indication: HEART TRANSPLANT
     Dosage: UNK, UNKNOWN FREQ.
     Route: 065
  3. MYCOPHENOLATE MOFETIL. [Concomitant]
     Active Substance: MYCOPHENOLATE MOFETIL
     Indication: HEART TRANSPLANT
     Dosage: UNK, UNKNOWN FREQ.
     Route: 065
  4. PREDNISONE. [Suspect]
     Active Substance: PREDNISONE
     Indication: HEART TRANSPLANT
     Route: 065
  5. MYCOPHENOLATE MOFETIL. [Concomitant]
     Active Substance: MYCOPHENOLATE MOFETIL
     Dosage: UNK, UNKNOWN FREQ.
     Route: 042
  6. SIROLIMUS. [Concomitant]
     Active Substance: SIROLIMUS
     Indication: HEART TRANSPLANT
     Dosage: UNK, UNKNOWN FREQ.
     Route: 065
  7. SIROLIMUS. [Concomitant]
     Active Substance: SIROLIMUS
     Dosage: UNK, UNKNOWN FREQ.
     Route: 042
  8. PREDNISONE. [Suspect]
     Active Substance: PREDNISONE
     Dosage: UNK, UNKNOWN FREQ.
     Route: 042

REACTIONS (10)
  - Weight increased [Recovering/Resolving]
  - Pain [Recovering/Resolving]
  - Dyspnoea [Unknown]
  - Respiratory disorder [Unknown]
  - Nausea [Recovering/Resolving]
  - Diabetes mellitus [Recovered/Resolved]
  - Dyspnoea exertional [Unknown]
  - Fluid overload [Unknown]
  - Peripheral swelling [Unknown]
  - Orthopnoea [Unknown]
